FAERS Safety Report 11330970 (Version 4)
Quarter: 2015Q3

REPORT INFORMATION
  Report Type: Spontaneous
  Country: CH (occurrence: CH)
  Receive Date: 20150803
  Receipt Date: 20150917
  Transmission Date: 20151125
  Serious: Yes (Other)
  Sender: FDA-Public Use
  Company Number: CH-ASTRAZENECA-2015SE74587

PATIENT
  Age: 51 Year
  Sex: Female

DRUGS (11)
  1. FASLODEX [Suspect]
     Active Substance: FULVESTRANT
     Indication: METASTASES TO BONE
     Route: 030
     Dates: start: 20140306
  2. FASLODEX [Suspect]
     Active Substance: FULVESTRANT
     Indication: METASTASES TO LUNG
     Route: 030
     Dates: start: 20140306
  3. FASLODEX [Suspect]
     Active Substance: FULVESTRANT
     Indication: METASTASES TO LIVER
     Route: 030
     Dates: start: 20140306
  4. EXEMESTANE. [Concomitant]
     Active Substance: EXEMESTANE
     Dates: start: 201001
  5. PALBOCICLIB [Concomitant]
     Active Substance: PALBOCICLIB
     Route: 048
  6. XELODA [Concomitant]
     Active Substance: CAPECITABINE
     Dates: start: 20130218, end: 20130810
  7. ABRAXANE [Concomitant]
     Active Substance: PACLITAXEL
     Dates: start: 20080609, end: 20081023
  8. FASLODEX [Suspect]
     Active Substance: FULVESTRANT
     Indication: BREAST CANCER METASTATIC
     Route: 030
     Dates: start: 20140306
  9. FASLODEX [Suspect]
     Active Substance: FULVESTRANT
     Indication: METASTASES TO LYMPH NODES
     Route: 030
     Dates: start: 20140306
  10. LEUPRORELIN [Concomitant]
     Active Substance: LEUPROLIDE ACETATE
     Dates: start: 20080619
  11. BEVACIZUMAB [Concomitant]
     Active Substance: BEVACIZUMAB
     Dates: start: 20080609, end: 20081023

REACTIONS (3)
  - Retroperitoneal lymphadenopathy [Unknown]
  - Metastases to lymph nodes [Not Recovered/Not Resolved]
  - Ovarian cancer metastatic [Unknown]

NARRATIVE: CASE EVENT DATE: 20141113
